FAERS Safety Report 16689657 (Version 2)
Quarter: 2019Q4

REPORT INFORMATION
  Report Type: Report from Study
  Country: US (occurrence: US)
  Receive Date: 20190809
  Receipt Date: 20191022
  Transmission Date: 20200122
  Serious: Yes (Other)
  Sender: FDA-Public Use
  Company Number: US-ACTELION-A-NJ2018-183879

PATIENT
  Age: 62 Year
  Sex: Female

DRUGS (24)
  1. METHAZOLAMIDE. [Concomitant]
     Active Substance: METHAZOLAMIDE
  2. PANTOPRAZOLE [Concomitant]
     Active Substance: PANTOPRAZOLE
  3. OXYGEN. [Concomitant]
     Active Substance: OXYGEN
  4. AMLODIPINE [Concomitant]
     Active Substance: AMLODIPINE BESYLATE
     Dosage: 5 MG, TID
  5. ATORVASTATIN [Concomitant]
     Active Substance: ATORVASTATIN
     Dosage: 20 MG, QD
  6. OPSUMIT [Suspect]
     Active Substance: MACITENTAN
     Indication: PULMONARY HYPERTENSION
     Dosage: 10 MG, QD
     Route: 048
     Dates: start: 20181018, end: 201907
  7. INSULIN LISPRO [Concomitant]
     Active Substance: INSULIN LISPRO
     Dosage: 10 U SQ TID
     Route: 058
  8. POTASSIUM CHLORIDE. [Concomitant]
     Active Substance: POTASSIUM CHLORIDE
     Dosage: 20 MEQ, QD
  9. TRIAMCINOLONE [Concomitant]
     Active Substance: TRIAMCINOLONE
  10. INSULIN GLARGINE [Concomitant]
     Active Substance: INSULIN GLARGINE
     Dosage: 10 U SQ HS
     Route: 058
  11. LABETALOL [Concomitant]
     Active Substance: LABETALOL\LABETALOL HYDROCHLORIDE
  12. TYVASO [Suspect]
     Active Substance: TREPROSTINIL
     Indication: PULMONARY HYPERTENSION
     Dosage: 6 INHALATION, QID
     Route: 055
     Dates: start: 201907
  13. SILDENAFIL. [Concomitant]
     Active Substance: SILDENAFIL
     Dosage: 40 MG, TID
  14. COSOPT [Concomitant]
     Active Substance: DORZOLAMIDE HYDROCHLORIDE\TIMOLOL MALEATE
  15. LORAZEPAM. [Concomitant]
     Active Substance: LORAZEPAM
  16. ALPHAGAN P [Concomitant]
     Active Substance: BRIMONIDINE TARTRATE
  17. CRANBERRY CONCENTRATE [Concomitant]
     Active Substance: CRANBERRY CONCENTRATE
  18. ASPIRIN. [Concomitant]
     Active Substance: ASPIRIN
     Dosage: 81 MG, QD
  19. XALATAN [Concomitant]
     Active Substance: LATANOPROST
  20. VITAMIN D3 [Concomitant]
     Active Substance: CHOLECALCIFEROL
  21. BIOTIN [Concomitant]
     Active Substance: BIOTIN
  22. FUROSEMIDE. [Concomitant]
     Active Substance: FUROSEMIDE
     Dosage: 40 MG, QD
  23. GABAPENTIN. [Concomitant]
     Active Substance: GABAPENTIN
  24. PRED FORTE [Concomitant]
     Active Substance: PREDNISOLONE ACETATE

REACTIONS (4)
  - Peripheral nerve palsy [Unknown]
  - Dyspnoea [Unknown]
  - Drug ineffective for unapproved indication [Unknown]
  - Facial paralysis [Unknown]

NARRATIVE: CASE EVENT DATE: 201811
